FAERS Safety Report 15319772 (Version 1)
Quarter: 2018Q3

REPORT INFORMATION
  Report Type: Spontaneous
  Country: EE (occurrence: EE)
  Receive Date: 20180827
  Receipt Date: 20180827
  Transmission Date: 20181010
  Serious: Yes (Other)
  Sender: FDA-Public Use
  Company Number: EE-CONCORDIA PHARMACEUTICALS INC.-GSH201808-003083

PATIENT
  Age: 77 Year
  Sex: Male
  Weight: 65 kg

DRUGS (6)
  1. ALFUZOSIN [Suspect]
     Active Substance: ALFUZOSIN
     Route: 048
     Dates: start: 2018
  2. HJERTEMAGNYL [Concomitant]
     Active Substance: ASPIRIN\MAGNESIUM OXIDE
     Indication: FEMORAL ARTERY ANEURYSM
     Dates: start: 2015
  3. RAMICOR [Concomitant]
     Indication: HYPERTENSION
     Dates: start: 2011
  4. FLURBIPROFEN. [Suspect]
     Active Substance: FLURBIPROFEN
     Indication: BENIGN PROSTATIC HYPERPLASIA
     Route: 048
     Dates: start: 201512, end: 201711
  5. ALFUZOSIN [Suspect]
     Active Substance: ALFUZOSIN
     Indication: BENIGN PROSTATIC HYPERPLASIA
     Route: 048
     Dates: start: 201712, end: 2018
  6. BETALOC [Concomitant]
     Active Substance: METOPROLOL TARTRATE
     Indication: HYPERTENSION
     Dates: start: 2016

REACTIONS (2)
  - Visual impairment [Not Recovered/Not Resolved]
  - Cataract [Not Recovered/Not Resolved]

NARRATIVE: CASE EVENT DATE: 2016
